FAERS Safety Report 5399762-9 (Version None)
Quarter: 2007Q3

REPORT INFORMATION
  Report Type: 
  Country: None (occurrence: None)
  Receive Date: 20070727
  Receipt Date: 20070720
  Transmission Date: 20080115
  Serious: Yes (Other)
  Sender: FDA-Public Use
  Company Number: JP-PFIZER INC-2007061466

PATIENT
  Age: 14 Year
  Sex: Female

DRUGS (3)
  1. SOLU-MEDROL [Suspect]
     Indication: MULTIPLE SCLEROSIS
     Route: 042
  2. INTERFERON BETA [Suspect]
     Indication: MULTIPLE SCLEROSIS
     Route: 042
  3. HEPARIN SODIUM [Concomitant]
     Route: 042

REACTIONS (1)
  - OVARIAN HAEMORRHAGE [None]
